FAERS Safety Report 7718687-4 (Version None)
Quarter: 2011Q3

REPORT INFORMATION
  Report Type: 
  Country: None (occurrence: None)
  Receive Date: 20110830
  Receipt Date: 20110826
  Transmission Date: 20111222
  Serious: No
  Sender: FDA-Public Use
  Company Number: US-TEVA-298455USA

PATIENT
  Sex: Female
  Weight: 68.1 kg

DRUGS (3)
  1. PLAN B ONE-STEP [Suspect]
     Indication: POST COITAL CONTRACEPTION
     Dosage: 1.5 MILLIGRAM;
     Route: 048
     Dates: start: 20110807, end: 20110807
  2. ADDERALL 5 [Concomitant]
     Indication: ATTENTION DEFICIT/HYPERACTIVITY DISORDER
  3. LEVONORGESTREL [Suspect]
     Indication: POST COITAL CONTRACEPTION
     Dosage: 1.5 MILLIGRAM;
     Route: 048
     Dates: start: 20110807

REACTIONS (2)
  - MENSTRUATION IRREGULAR [None]
  - VOMITING [None]
